FAERS Safety Report 8393780-4 (Version None)
Quarter: 2012Q2

REPORT INFORMATION
  Report Type: 
  Country: None (occurrence: None)
  Receive Date: 20120530
  Receipt Date: 20120521
  Transmission Date: 20120825
  Serious: No
  Sender: FDA-Public Use
  Company Number: US-BIOGENIDEC-2012BI017882

PATIENT
  Sex: Female

DRUGS (1)
  1. AVONEX [Suspect]
     Indication: MULTIPLE SCLEROSIS
     Route: 030
     Dates: start: 20081008, end: 20110501

REACTIONS (4)
  - MULTIPLE SCLEROSIS RELAPSE [None]
  - VERTIGO [None]
  - EYE COLOUR CHANGE [None]
  - PARAESTHESIA [None]
